FAERS Safety Report 13504151 (Version 1)
Quarter: 2017Q2

REPORT INFORMATION
  Report Type: Spontaneous
  Country: US (occurrence: US)
  Receive Date: 20170502
  Receipt Date: 20170502
  Transmission Date: 20170830
  Serious: Yes (Life-Threatening, Hospitalization, Other)
  Sender: FDA-Public Use
  Company Number: US-LANNETT COMPANY, INC.-US-2017LAN000732

PATIENT
  Age: 56 Year
  Sex: Male

DRUGS (2)
  1. HALOPERIDOL LACTATE. [Suspect]
     Active Substance: HALOPERIDOL LACTATE
     Indication: PSYCHOTIC DISORDER
     Dosage: 5 MG, SINGLE
     Route: 030
  2. CLOZAPINE. [Suspect]
     Active Substance: CLOZAPINE
     Indication: SCHIZOPHRENIA
     Dosage: UNK

REACTIONS (4)
  - Subdural haematoma [Unknown]
  - Neuroleptic malignant syndrome [Recovered/Resolved]
  - Delirium [Recovered/Resolved]
  - Radial nerve palsy [Unknown]
